FAERS Safety Report 9287089 (Version 4)
Quarter: 2013Q3

REPORT INFORMATION
  Report Type: Spontaneous
  Country: US (occurrence: None)
  Receive Date: 20130508
  Receipt Date: 20130806
  Transmission Date: 20140515
  Serious: Yes (Hospitalization)
  Sender: FDA-Public Use
  Company Number: 2013P1005285

PATIENT
  Age: 73 Year
  Sex: Male

DRUGS (3)
  1. INFUMORPH [Suspect]
     Indication: BACK PAIN
     Dates: start: 201304
  2. INFUMORPH [Suspect]
     Indication: SPINAL PAIN
     Dates: start: 201304
  3. METOPROLOL [Suspect]

REACTIONS (10)
  - Hypertension [None]
  - Heart rate increased [None]
  - Heart rate decreased [None]
  - Urinary retention [None]
  - Confusional state [None]
  - Left ventricular hypertrophy [None]
  - Bradycardia [None]
  - Blood magnesium decreased [None]
  - Hyponatraemia [None]
  - Hypertensive heart disease [None]
